FAERS Safety Report 8045189-0 (Version None)
Quarter: 2012Q1

REPORT INFORMATION
  Report Type: 
  Country: None (occurrence: None)
  Receive Date: 20120113
  Receipt Date: 20110829
  Transmission Date: 20120608
  Serious: Yes (Hospitalization)
  Sender: FDA-Public Use
  Company Number: US-ASTRAZENECA-2011SE18162

PATIENT
  Age: 25 Year
  Sex: Female
  Weight: 55.3 kg

DRUGS (8)
  1. SEROQUEL XR [Suspect]
     Route: 048
     Dates: start: 20110101, end: 20110305
  2. SEROQUEL XR [Suspect]
     Indication: DEPRESSION
     Route: 048
     Dates: start: 20101222, end: 20110101
  3. CITALOPRAM [Concomitant]
  4. SEROQUEL XR [Suspect]
     Indication: PSYCHOTIC DISORDER
     Route: 048
     Dates: start: 20101222, end: 20110101
  5. SEROQUEL XR [Suspect]
     Route: 048
     Dates: start: 20110101, end: 20110305
  6. ZYRTEC [Concomitant]
  7. MENOTRICYCLINE [Concomitant]
  8. MULTI-VITAMIN [Concomitant]

REACTIONS (1)
  - PANCREATITIS [None]
